FAERS Safety Report 9395005 (Version 1)
Quarter: 2013Q3

REPORT INFORMATION
  Report Type: Spontaneous
  Country: FI (occurrence: FI)
  Receive Date: 20130711
  Receipt Date: 20130711
  Transmission Date: 20140515
  Serious: Yes (Hospitalization)
  Sender: FDA-Public Use
  Company Number: FI-PFIZER INC-2013198776

PATIENT
  Age: 77 Year
  Sex: Male

DRUGS (7)
  1. SALAZOPYRIN EN-TABS [Suspect]
     Indication: POLYMYALGIA RHEUMATICA
     Dosage: 1000 MG, 2X/DAY
     Route: 048
     Dates: start: 20130528, end: 20130625
  2. NEXIUM [Concomitant]
     Indication: PROPHYLAXIS AGAINST GASTROINTESTINAL ULCER
     Dosage: 40 MG, 1X/DAY
     Route: 048
     Dates: start: 20120906
  3. PREDNISOLON [Concomitant]
     Indication: POLYMYALGIA RHEUMATICA
     Dosage: 5 MG, UNK
     Route: 048
     Dates: start: 20120528, end: 20130625
  4. PREDNISOLON [Concomitant]
     Dosage: 20 MG, 1X/DAY
     Dates: start: 20130625
  5. PANADOL [Concomitant]
     Indication: PAIN
     Dosage: 500 MG, AS NEEDED
     Route: 048
     Dates: start: 20120905
  6. KALCIPOS-D [Concomitant]
     Dosage: 500 MG/400 IU, UNK
     Route: 048
     Dates: start: 20120906
  7. TRAMAL RETARD [Concomitant]
     Indication: PAIN
     Dosage: 100 MG, AS NEEDED
     Route: 048
     Dates: start: 20120912

REACTIONS (8)
  - Erythema [Not Recovered/Not Resolved]
  - Feeling hot [Not Recovered/Not Resolved]
  - Swelling face [Not Recovered/Not Resolved]
  - Urticaria [Not Recovered/Not Resolved]
  - Purpura [Not Recovered/Not Resolved]
  - Localised oedema [Not Recovered/Not Resolved]
  - Drug interaction [Not Recovered/Not Resolved]
  - C-reactive protein increased [Recovering/Resolving]
